FAERS Safety Report 25418008 (Version 1)
Quarter: 2025Q2

REPORT INFORMATION
  Report Type: Spontaneous
  Country: US (occurrence: None)
  Receive Date: 20250609
  Receipt Date: 20250609
  Transmission Date: 20250716
  Serious: No
  Sender: FDA-CTU
  Company Number: None

PATIENT
  Age: 12 Year
  Sex: Female
  Weight: 42.2 kg

DRUGS (1)
  1. XOLAIR [Suspect]
     Active Substance: OMALIZUMAB
     Indication: Asthma
     Dosage: OTHER FREQUENCY : Q28DAYS;?
     Route: 058
     Dates: start: 20240820

REACTIONS (3)
  - Urticaria [None]
  - Blister [None]
  - Injection site mass [None]

NARRATIVE: CASE EVENT DATE: 20250526
